FAERS Safety Report 14046454 (Version 1)
Quarter: 2017Q4

REPORT INFORMATION
  Report Type: Spontaneous
  Country: US (occurrence: US)
  Receive Date: 20171005
  Receipt Date: 20171005
  Transmission Date: 20180321
  Serious: No
  Sender: FDA-Public Use
  Company Number: US-INDIVIOR LIMITED-INDV-101636-2017

PATIENT
  Age: 28 Year
  Sex: Female

DRUGS (2)
  1. SUBUTEX [Suspect]
     Active Substance: BUPRENORPHINE HYDROCHLORIDE
     Dosage: 2MG UNK
     Route: 065
  2. SUBUTEX [Suspect]
     Active Substance: BUPRENORPHINE HYDROCHLORIDE
     Indication: DRUG USE DISORDER
     Dosage: UNK
     Route: 065

REACTIONS (8)
  - Psychiatric symptom [Unknown]
  - Drug detoxification [Recovered/Resolved]
  - Feeling abnormal [Unknown]
  - Procedural pain [Unknown]
  - Diarrhoea [Unknown]
  - Adverse event [Unknown]
  - Pain [Unknown]
  - Maternal exposure during pregnancy [Recovered/Resolved]
